FAERS Safety Report 21263631 (Version 1)
Quarter: 2022Q3

REPORT INFORMATION
  Report Type: Report from Study
  Country: CN (occurrence: None)
  Receive Date: 20220829
  Receipt Date: 20220829
  Transmission Date: 20221027
  Serious: Yes (Death, Hospitalization)
  Sender: FDA-Public Use
  Company Number: CN-ROCHE-3113729

PATIENT
  Age: 40 Year
  Sex: Male
  Weight: 63 kg

DRUGS (8)
  1. BEVACIZUMAB [Suspect]
     Active Substance: BEVACIZUMAB
     Indication: Colorectal cancer metastatic
     Route: 041
     Dates: start: 20211021, end: 20220506
  2. BEVACIZUMAB [Suspect]
     Active Substance: BEVACIZUMAB
     Route: 041
     Dates: start: 20211021
  3. BEVACIZUMAB [Suspect]
     Active Substance: BEVACIZUMAB
     Route: 041
     Dates: start: 20220624, end: 20220624
  4. CAPECITABINE [Suspect]
     Active Substance: CAPECITABINE
     Indication: Colorectal cancer metastatic
     Dosage: FROM DAY 1 TO 14 AFTER EACH CYCLE OF CHEMOTHERAPY (D1-D14)
     Route: 048
     Dates: start: 20211021, end: 20220520
  5. CAPECITABINE [Suspect]
     Active Substance: CAPECITABINE
     Route: 048
     Dates: start: 20211021
  6. CAPECITABINE [Suspect]
     Active Substance: CAPECITABINE
     Dosage: DAY1-14 OF EACH CYCLE
     Route: 048
     Dates: start: 20211021, end: 20220520
  7. CAPECITABINE [Suspect]
     Active Substance: CAPECITABINE
     Dosage: DAY1-14 OF EACH CYCLE
     Route: 048
     Dates: start: 20220624
  8. OXALIPLATIN [Suspect]
     Active Substance: OXALIPLATIN
     Indication: Colorectal cancer metastatic
     Route: 041
     Dates: start: 20211021, end: 20220322

REACTIONS (1)
  - Pelvic infection [Fatal]

NARRATIVE: CASE EVENT DATE: 20220526
